FAERS Safety Report 4805898-0 (Version None)
Quarter: 2005Q4

REPORT INFORMATION
  Report Type: 
  Country: None (occurrence: None)
  Receive Date: 20051018
  Receipt Date: 20051003
  Transmission Date: 20060501
  Serious: Yes (Hospitalization, Other)
  Sender: FDA-Public Use
  Company Number: 2005-US-00471

PATIENT
  Sex: Female

DRUGS (3)
  1. CYCLOSPORINE [Suspect]
     Indication: COLITIS ULCERATIVE
     Dosage: 160 MG, INTRAVENOUS
     Route: 042
  2. MERCAPTOPURINE [Concomitant]
  3. PREDNISONE [Concomitant]

REACTIONS (6)
  - APHASIA [None]
  - BLOOD FIBRINOGEN INCREASED [None]
  - CEREBRAL INFARCTION [None]
  - COAGULATION FACTOR VIII LEVEL INCREASED [None]
  - HEADACHE [None]
  - THROMBIN-ANTITHROMBIN III COMPLEX INCREASED [None]
